FAERS Safety Report 14624603 (Version 4)
Quarter: 2021Q1

REPORT INFORMATION
  Report Type: Spontaneous
  Country: ML (occurrence: ML)
  Receive Date: 20180312
  Receipt Date: 20210210
  Transmission Date: 20210419
  Serious: Yes (Death, Hospitalization, Other)
  Sender: FDA-Public Use
  Company Number: PHHY2018ML039354

PATIENT
  Age: 53 Year
  Sex: Male
  Weight: 67 kg

DRUGS (2)
  1. GLIVEC [Suspect]
     Active Substance: IMATINIB MESYLATE
     Indication: CHRONIC MYELOID LEUKAEMIA
     Dosage: 600 MG, UNK
     Route: 048
     Dates: start: 20100129
  2. GLIVEC [Suspect]
     Active Substance: IMATINIB MESYLATE
     Dosage: 600 MG, UNK
     Route: 048
     Dates: start: 20100224, end: 20180228

REACTIONS (12)
  - Ascites [Fatal]
  - Hyperkalaemia [Unknown]
  - Monocyte count increased [Unknown]
  - Non-Hodgkin^s lymphoma [Unknown]
  - Dyspnoea [Fatal]
  - Haemoglobin decreased [Unknown]
  - White blood cell count increased [Unknown]
  - Anaemia [Fatal]
  - Lymphadenopathy [Fatal]
  - Second primary malignancy [Unknown]
  - Abdominal distension [Fatal]
  - General physical health deterioration [Fatal]

NARRATIVE: CASE EVENT DATE: 201712
